FAERS Safety Report 5900330-8 (Version None)
Quarter: 2008Q3

REPORT INFORMATION
  Report Type: 
  Country: None (occurrence: None)
  Receive Date: 20080926
  Receipt Date: 20080915
  Transmission Date: 20090109
  Serious: Yes (Hospitalization)
  Sender: FDA-Public Use
  Company Number: US-ROCHE-587342

PATIENT
  Age: 4 Year
  Sex: Male

DRUGS (2)
  1. CLONAZEPAM [Suspect]
     Indication: DRUG USE FOR UNKNOWN INDICATION
     Dosage: UNKNOWN NUMBER OF CLONAZEPAM TAKEN IN OVERDOSE
     Route: 065
  2. FLUMAZENIL [Suspect]
     Indication: DRUG USE FOR UNKNOWN INDICATION
     Route: 065

REACTIONS (5)
  - ATAXIA [None]
  - ATRIOVENTRICULAR BLOCK [None]
  - COMA [None]
  - OVERDOSE [None]
  - RESPIRATORY DEPRESSION [None]
